FAERS Safety Report 7869689-9 (Version None)
Quarter: 2011Q4

REPORT INFORMATION
  Report Type: 
  Country: None (occurrence: None)
  Receive Date: 20111028
  Receipt Date: 20110106
  Transmission Date: 20120403
  Serious: No
  Sender: FDA-Public Use
  Company Number: US-AMGEN-USASP2010012014

PATIENT
  Age: 16 Year
  Sex: Female
  Weight: 73 kg

DRUGS (3)
  1. ENBREL [Suspect]
     Indication: JUVENILE ARTHRITIS
     Dosage: 50 MG, QWK
     Route: 058
     Dates: start: 20101201
  2. METHOTREXATE [Concomitant]
     Indication: ARTHRITIS
     Dosage: 15 MG, QWK
     Route: 048
     Dates: start: 20070101
  3. NAPROXEN [Concomitant]
     Dosage: UNK UNK, PRN

REACTIONS (13)
  - INJECTION SITE SWELLING [None]
  - INJECTION SITE WARMTH [None]
  - INJECTION SITE PRURITUS [None]
  - INJECTION SITE PAIN [None]
  - HEADACHE [None]
  - ABDOMINAL PAIN UPPER [None]
  - FATIGUE [None]
  - INJECTION SITE REACTION [None]
  - EYE PAIN [None]
  - DIPLOPIA [None]
  - ASTHENIA [None]
  - ANGER [None]
  - INJECTION SITE ERYTHEMA [None]
